FAERS Safety Report 7392184-0 (Version None)
Quarter: 2011Q2

REPORT INFORMATION
  Report Type: 
  Country: None (occurrence: None)
  Receive Date: 20110404
  Receipt Date: 20110324
  Transmission Date: 20111010
  Serious: Yes (Other)
  Sender: FDA-Public Use
  Company Number: B0705138A

PATIENT
  Sex: Male

DRUGS (7)
  1. REQUIP [Suspect]
     Indication: PARKINSON'S DISEASE
     Route: 065
     Dates: start: 20060901
  2. ELDEPRYL [Concomitant]
     Indication: PARKINSON'S DISEASE
  3. DILTIAZEM HCL [Concomitant]
     Indication: HYPERTENSION
     Dates: start: 20100501
  4. PROLOPA [Concomitant]
     Indication: PARKINSON'S DISEASE
     Dates: start: 20081105
  5. FINASTERIDE [Concomitant]
     Dates: start: 20100101
  6. REQUIP [Suspect]
     Indication: PARKINSON'S DISEASE
     Route: 065
     Dates: start: 20100101
  7. PROLOPA [Concomitant]
     Dates: start: 20090501

REACTIONS (2)
  - MOTOR DYSFUNCTION [None]
  - SLEEP ATTACKS [None]
